FAERS Safety Report 6850270-5 (Version None)
Quarter: 2010Q3

REPORT INFORMATION
  Report Type: 
  Country: None (occurrence: None)
  Receive Date: 20100716
  Receipt Date: 20071015
  Transmission Date: 20110219
  Serious: No
  Sender: FDA-Public Use
  Company Number: US-PFIZER INC-2007086595

PATIENT
  Sex: Female
  Weight: 84.1 kg

DRUGS (9)
  1. CHANTIX [Suspect]
     Indication: SMOKING CESSATION THERAPY
     Dates: start: 20070920, end: 20071006
  2. AVANDAMET [Concomitant]
  3. ZOCOR [Concomitant]
  4. ZETIA [Concomitant]
  5. GLUCOTROL XL [Concomitant]
  6. DEXTROSE [Concomitant]
  7. INSULIN [Concomitant]
  8. WELLBUTRIN [Concomitant]
  9. ZOLOFT [Concomitant]

REACTIONS (2)
  - MALAISE [None]
  - NAUSEA [None]
